FAERS Safety Report 6808048-4 (Version None)
Quarter: 2010Q2

REPORT INFORMATION
  Report Type: 
  Country: None (occurrence: None)
  Receive Date: 20100629
  Receipt Date: 20090223
  Transmission Date: 20101027
  Serious: No
  Sender: FDA-Public Use
  Company Number: US-PFIZER INC-2009173699

PATIENT
  Age: 62 Year
  Sex: Female
  Weight: 61.2 kg

DRUGS (1)
  1. XANAX [Suspect]

REACTIONS (1)
  - MIDDLE INSOMNIA [None]
